FAERS Safety Report 7513996-6 (Version None)
Quarter: 2011Q2

REPORT INFORMATION
  Report Type: 
  Country: None (occurrence: None)
  Receive Date: 20110531
  Receipt Date: 20110519
  Transmission Date: 20111010
  Serious: Yes (Hospitalization)
  Sender: FDA-Public Use
  Company Number: US-UCBSA-033488

PATIENT
  Sex: Female

DRUGS (3)
  1. CIMZIA [Suspect]
     Dosage: INDUCTION DOSE
     Route: 058
     Dates: start: 20090618
  2. CIMZIA [Suspect]
     Route: 058
     Dates: start: 20101101
  3. XANAX [Concomitant]
     Indication: ANXIETY

REACTIONS (2)
  - CHEST PAIN [None]
  - CARDIAC STRESS TEST ABNORMAL [None]
